FAERS Safety Report 8538075-0 (Version None)
Quarter: 2012Q3

REPORT INFORMATION
  Report Type: 
  Country: None (occurrence: None)
  Receive Date: 20120725
  Receipt Date: 20120713
  Transmission Date: 20120928
  Serious: Yes (Death, Hospitalization)
  Sender: FDA-Public Use
  Company Number: IT-PFIZER INC-2011149410

PATIENT
  Age: 43 Year
  Sex: Male
  Weight: 75 kg

DRUGS (7)
  1. CRIZOTINIB [Suspect]
     Indication: NON-SMALL CELL LUNG CANCER
     Dosage: 250 MG, 2X/DAY
     Route: 048
     Dates: start: 20110511, end: 20110709
  2. ENOXAPARIN SODIUM [Concomitant]
     Indication: PULMONARY EMBOLISM
     Dosage: 8000 IU, 1X/DAY
     Route: 058
     Dates: start: 20110414, end: 20110711
  3. NEXIUM [Concomitant]
     Indication: PROPHYLAXIS
     Dosage: 20 MG, 1X/DAY
     Route: 048
     Dates: start: 20110703, end: 20110711
  4. MACROGOL [Concomitant]
     Indication: CONSTIPATION
     Dosage: 4 G, 1X/DAY
     Route: 048
     Dates: start: 20110601, end: 20110711
  5. DEXAMETHASONE SODIUM PHOSPHATE [Concomitant]
     Indication: DYSPNOEA
     Dosage: 2 MG, 1X/DAY
     Route: 048
     Dates: start: 20110622, end: 20110711
  6. SYNACTEN [Concomitant]
     Indication: FATIGUE
     Dosage: 1 MG, WEEKLY
     Route: 030
     Dates: start: 20110601, end: 20110711
  7. MS CONTIN [Concomitant]
     Indication: DYSPNOEA
     Dosage: 5 MG, 1X/DAY
     Route: 048
     Dates: start: 20110701, end: 20110711

REACTIONS (3)
  - DISEASE PROGRESSION [None]
  - CONFUSIONAL STATE [None]
  - NON-SMALL CELL LUNG CANCER [None]
